FAERS Safety Report 20244719 (Version 1)
Quarter: 2021Q4

REPORT INFORMATION
  Report Type: Spontaneous
  Country: ID (occurrence: ID)
  Receive Date: 20211229
  Receipt Date: 20211229
  Transmission Date: 20220303
  Serious: Yes (Other)
  Sender: FDA-Public Use
  Company Number: ID-LUPIN PHARMACEUTICALS INC.-2021-25640

PATIENT
  Age: 25 Year
  Sex: Female

DRUGS (18)
  1. METHYLPREDNISOLONE [Suspect]
     Active Substance: METHYLPREDNISOLONE
     Indication: Systemic lupus erythematosus
     Dosage: 4 MILLIGRAM, QD
     Route: 048
  2. METHYLPREDNISOLONE [Suspect]
     Active Substance: METHYLPREDNISOLONE
     Indication: Pre-eclampsia
     Dosage: 62.5 MILLIGRAM (3 HOURS BEFORE CESAREAN SECTION FOLLOWED BY IV METHYLPREDNISOLONE INJECTION 62.5 MG
     Route: 042
  3. CALCIUM [Suspect]
     Active Substance: CALCIUM
     Indication: Systemic lupus erythematosus
     Dosage: UNK
     Route: 065
  4. CALCIUM [Suspect]
     Active Substance: CALCIUM
     Dosage: 500 MILLIGRAM, QD
     Route: 065
  5. RAMIPRIL [Suspect]
     Active Substance: RAMIPRIL
     Indication: Peripartum cardiomyopathy
     Dosage: 2.5 MILLIGRAM, QD
     Route: 048
  6. AZATHIOPRINE [Suspect]
     Active Substance: AZATHIOPRINE
     Indication: Systemic lupus erythematosus
     Dosage: 50 MILLIGRAM, BID
     Route: 048
  7. MAGNESIUM SULFATE [Suspect]
     Active Substance: MAGNESIUM SULFATE
     Indication: Pre-eclampsia
     Dosage: EVERY HOUR UP TO 24 HOURS POSTPARTUM
     Route: 042
  8. NIFEDIPINE [Suspect]
     Active Substance: NIFEDIPINE
     Indication: Peripartum cardiomyopathy
     Dosage: 10 MILLIGRAM, TID
     Route: 048
  9. NIFEDIPINE [Suspect]
     Active Substance: NIFEDIPINE
     Indication: Hypertension
  10. METHYLDOPA [Suspect]
     Active Substance: METHYLDOPA
     Indication: Hypertension
     Dosage: 500 MILLIGRAM, TID
     Route: 048
  11. FUROSEMIDE [Suspect]
     Active Substance: FUROSEMIDE
     Indication: Lupus nephritis
     Dosage: 20 MILLIGRAM, TID
     Route: 042
  12. FUROSEMIDE [Suspect]
     Active Substance: FUROSEMIDE
     Indication: Hypertension
  13. FUROSEMIDE [Suspect]
     Active Substance: FUROSEMIDE
     Indication: Peripartum cardiomyopathy
  14. ISOSORBIDE DINITRATE [Suspect]
     Active Substance: ISOSORBIDE DINITRATE
     Indication: Hypertension
     Dosage: 5 MILLIGRAM, TID
     Route: 048
  15. ISOSORBIDE DINITRATE [Suspect]
     Active Substance: ISOSORBIDE DINITRATE
     Indication: Peripartum cardiomyopathy
  16. SPIRONOLACTONE [Suspect]
     Active Substance: SPIRONOLACTONE
     Indication: Hypertension
     Dosage: 25 MILLIGRAM, QD
     Route: 048
  17. SPIRONOLACTONE [Suspect]
     Active Substance: SPIRONOLACTONE
     Indication: Lupus nephritis
  18. SPIRONOLACTONE [Suspect]
     Active Substance: SPIRONOLACTONE
     Indication: Peripartum cardiomyopathy

REACTIONS (5)
  - Maternal exposure during pregnancy [Unknown]
  - Peripartum cardiomyopathy [Unknown]
  - Oligohydramnios [Unknown]
  - Lupus nephritis [Unknown]
  - Hypertension [Unknown]
